FAERS Safety Report 4456717-6 (Version None)
Quarter: 2004Q3

REPORT INFORMATION
  Report Type: 
  Country: None (occurrence: None)
  Receive Date: 20040921
  Receipt Date: 20040907
  Transmission Date: 20050211
  Serious: No
  Sender: FDA-Public Use
  Company Number: 04P-087-0272909-00

PATIENT
  Age: 58 Year
  Sex: Male

DRUGS (10)
  1. KALETRA [Suspect]
     Indication: HIV INFECTION
     Dosage: 6 CAPSULES DAILY, PER ORAL
     Route: 048
     Dates: start: 20030509, end: 20030514
  2. DIDASONINE [Suspect]
     Indication: HIV INFECTION
     Dosage: 125 MG DAILY, PER ORAL
     Route: 048
     Dates: start: 20030401, end: 20030408
  3. STAVUDINE [Suspect]
     Indication: HIV INFECTION
     Dosage: 15 MG DAILY, PER ORAL
     Route: 048
     Dates: start: 20030401, end: 20030408
  4. NELFINAVIR [Suspect]
     Indication: HIV INFECTION
     Dosage: 2.5 GRAM DAILY, PER ORAL
     Route: 048
     Dates: start: 20030401, end: 20030408
  5. ZIDOVUDINE [Suspect]
     Indication: HIV INFECTION
     Dosage: PER ORAL
     Route: 048
     Dates: start: 20030509, end: 20030514
  6. ABACAVIR [Concomitant]
  7. NEVIRAPINE [Concomitant]
  8. ALLOPURINOL [Concomitant]
  9. AMLODIPINE BESYLATE [Concomitant]
  10. EPOETIN ALFA [Concomitant]

REACTIONS (5)
  - HAEMODIALYSIS [None]
  - HYPERAMYLASAEMIA [None]
  - HYPERLIPIDAEMIA [None]
  - RENAL DISORDER [None]
  - RENAL FAILURE CHRONIC [None]
